FAERS Safety Report 6079103-4 (Version None)
Quarter: 2009Q1

REPORT INFORMATION
  Report Type: 
  Country: None (occurrence: None)
  Receive Date: 20090216
  Receipt Date: 20090209
  Transmission Date: 20090719
  Serious: Yes (Hospitalization)
  Sender: FDA-Public Use
  Company Number: A0718707A

PATIENT
  Age: 56 Year
  Sex: Male
  Weight: 83.6 kg

DRUGS (6)
  1. AVANDIA [Suspect]
     Dosage: 8MG PER DAY
     Route: 048
     Dates: start: 20010814, end: 20070614
  2. ACTOS [Concomitant]
     Dates: start: 20060301
  3. GLUCOPHAGE [Concomitant]
     Dates: start: 19880101, end: 20060101
  4. METFORMIN HCL [Concomitant]
     Dates: start: 20020315
  5. LANTUS [Concomitant]
     Dates: start: 20030201, end: 20080101
  6. GLUCOTROL [Concomitant]
     Dates: start: 19990730, end: 20070601

REACTIONS (1)
  - MYOCARDIAL INFARCTION [None]
